FAERS Safety Report 9031000 (Version 1)
Quarter: 2013Q1

REPORT INFORMATION
  Report Type: Spontaneous
  Country: JP (occurrence: JP)
  Receive Date: 20130123
  Receipt Date: 20130123
  Transmission Date: 20140127
  Serious: Yes (Hospitalization)
  Sender: FDA-Public Use
  Company Number: PHHY2013JP005796

PATIENT
  Sex: Male

DRUGS (8)
  1. AMIODARONE HYDROCHLORIDE [Suspect]
     Indication: ATRIAL FIBRILLATION
     Dosage: 200 MG, PER DAY
     Route: 048
     Dates: start: 20110716
  2. REBAMIPIDE [Concomitant]
     Route: 048
  3. MAGMITT [Concomitant]
     Route: 048
  4. VALERIN [Concomitant]
     Route: 048
  5. LASIX [Concomitant]
     Route: 048
  6. ARTIST [Concomitant]
     Route: 048
  7. TAKEPRON [Concomitant]
     Route: 048
  8. WARFARIN [Concomitant]
     Route: 048

REACTIONS (1)
  - Hypoglycaemia [Recovered/Resolved]
